FAERS Safety Report 4678013-4 (Version None)
Quarter: 2005Q2

REPORT INFORMATION
  Report Type: 
  Country: None (occurrence: None)
  Receive Date: 20050531
  Receipt Date: 20050218
  Transmission Date: 20051028
  Serious: Yes (Other)
  Sender: FDA-Public Use
  Company Number: JP-ABBOTT-05P-087-0300517-00

PATIENT
  Sex: Male

DRUGS (11)
  1. NORVIR [Suspect]
     Indication: HIV INFECTION
     Route: 048
     Dates: start: 20041109
  2. LAMIVUDINE [Suspect]
     Indication: HIV INFECTION
     Route: 048
     Dates: start: 20030401, end: 20050330
  3. ZIDOVUDINE [Suspect]
     Indication: HIV INFECTION
     Route: 048
     Dates: start: 20040401, end: 20041108
  4. INDINAVIR [Suspect]
     Indication: HIV INFECTION
     Route: 048
     Dates: start: 20040401, end: 20041108
  5. ABACAVIR [Suspect]
     Indication: HIV INFECTION
     Route: 048
     Dates: start: 20041109, end: 20050330
  6. ATAZANAVIR [Suspect]
     Indication: HIV INFECTION
     Route: 048
     Dates: start: 20041109
  7. LAMIVUDINE/ABACAVIR [Concomitant]
     Indication: HIV INFECTION
     Route: 048
     Dates: start: 20050331
  8. COAGULATION FACTOR VIII [Concomitant]
     Indication: FACTOR VIII DEFICIENCY
     Route: 042
     Dates: start: 20040401, end: 20040905
  9. COAGULATION FACTOR VIII [Concomitant]
     Indication: HAEMORRHAGE
     Route: 042
     Dates: start: 20040728, end: 20040730
  10. COAGULATION FACTOR VIII [Concomitant]
     Route: 042
     Dates: start: 20040906, end: 20041030
  11. COAGULATION FACTOR VIII [Concomitant]
     Route: 042
     Dates: start: 20041101

REACTIONS (2)
  - BLOOD BILIRUBIN INCREASED [None]
  - DIARRHOEA [None]
